FAERS Safety Report 9190485 (Version 2)
Quarter: 2013Q2

REPORT INFORMATION
  Report Type: Spontaneous
  Country: US (occurrence: US)
  Receive Date: 20130326
  Receipt Date: 20130627
  Transmission Date: 20140414
  Serious: Yes (Other)
  Sender: FDA-Public Use
  Company Number: US-JNJFOC-20130311991

PATIENT
  Age: 58 Year
  Sex: Female
  Weight: 118 kg

DRUGS (18)
  1. NICOTROL NASAL SPRAY [Suspect]
     Indication: SMOKING CESSATION THERAPY
     Dosage: 1 TO 2 SPRAYS PER HOUR
     Route: 055
     Dates: start: 20130310, end: 20130311
  2. HYDRALAZINE HYDROCHLORIDE [Concomitant]
     Route: 048
  3. ASPIRIN [Concomitant]
     Route: 065
  4. OMEPRAZOLE [Concomitant]
     Indication: GASTRIC DISORDER
     Dosage: AS NEEDED
     Route: 065
  5. HYDROCODONE [Concomitant]
     Indication: PAIN
     Route: 065
  6. PROAIR HFA [Concomitant]
     Indication: PRODUCT USED FOR UNKNOWN INDICATION
     Route: 065
     Dates: start: 20111130
  7. HCTZ WITH TRIAMETERENE [Concomitant]
     Indication: PRODUCT USED FOR UNKNOWN INDICATION
     Route: 065
  8. GABAPENTIN [Concomitant]
     Indication: PRODUCT USED FOR UNKNOWN INDICATION
     Route: 048
     Dates: start: 20120127
  9. GLIPIZIDE [Concomitant]
     Route: 048
  10. COZAAR [Concomitant]
     Route: 048
  11. HYDROCODONE ACETAMINOPHEN [Concomitant]
     Route: 065
     Dates: start: 20130225
  12. ALPRAZOLAM [Concomitant]
     Route: 048
  13. LIPITOR [Concomitant]
     Route: 048
     Dates: start: 20130308
  14. CATAPRES [Concomitant]
     Route: 048
  15. NORVASC [Concomitant]
     Route: 048
  16. SALBUTAMOL SULFATE [Concomitant]
     Route: 045
     Dates: start: 20130308
  17. SPIRIVA HANDIHALER [Concomitant]
     Route: 065
     Dates: start: 20130308
  18. OMEPRAZOLE [Concomitant]
     Indication: GASTRIC DISORDER
     Dosage: AS NEEDED
     Route: 048

REACTIONS (4)
  - Mydriasis [Not Recovered/Not Resolved]
  - Ocular hyperaemia [Not Recovered/Not Resolved]
  - Conjunctival haemorrhage [Recovered/Resolved]
  - Conjunctivitis allergic [Recovered/Resolved]
